FAERS Safety Report 22658745 (Version 1)
Quarter: 2023Q2

REPORT INFORMATION
  Report Type: Spontaneous
  Country: US (occurrence: US)
  Receive Date: 20230630
  Receipt Date: 20230630
  Transmission Date: 20230722
  Serious: No
  Sender: FDA-Public Use
  Company Number: US-GALDERMA-US2023007909

PATIENT

DRUGS (1)
  1. ORACEA [Suspect]
     Active Substance: DOXYCYCLINE
     Indication: Alpha-1 antitrypsin deficiency
     Dosage: 1 DOSAGE FORM
     Route: 065

REACTIONS (3)
  - Abdominal discomfort [Unknown]
  - Intentional product use issue [Recovered/Resolved]
  - Drug effective for unapproved indication [Recovered/Resolved]
